FAERS Safety Report 24848217 (Version 1)
Quarter: 2025Q1

REPORT INFORMATION
  Report Type: Spontaneous
  Country: US (occurrence: US)
  Receive Date: 20250116
  Receipt Date: 20250116
  Transmission Date: 20250409
  Serious: No
  Sender: RICONPHARMA LLC
  Company Number: US-RICONPHARMA, LLC-2024RIC000046

PATIENT

DRUGS (3)
  1. SCOPOLAMINE [Suspect]
     Active Substance: SCOPOLAMINE
     Indication: Motion sickness
     Route: 062
     Dates: end: 20240623
  2. LISINOPRIL [Concomitant]
     Active Substance: LISINOPRIL
     Indication: Nephropathy
     Route: 065
  3. Tri-lo-milli [Concomitant]
     Indication: Contraception
     Route: 065

REACTIONS (5)
  - Application site swelling [Recovered/Resolved]
  - Application site pruritus [Recovered/Resolved]
  - Application site irritation [Recovered/Resolved]
  - Product adhesion issue [Unknown]
  - Product quality issue [Unknown]
